FAERS Safety Report 10461115 (Version 1)
Quarter: 2014Q3

REPORT INFORMATION
  Report Type: Spontaneous
  Country: US (occurrence: US)
  Receive Date: 20140918
  Receipt Date: 20140918
  Transmission Date: 20150326
  Serious: No
  Sender: FDA-Public Use
  Company Number: US-BAYER-2014-139234

PATIENT
  Age: 76 Year
  Sex: Female
  Weight: 58.5 kg

DRUGS (5)
  1. HYDROCHLOROTHIAZIDE. [Concomitant]
     Active Substance: HYDROCHLOROTHIAZIDE
  2. BAYER ASPIRIN SUGAR FREE LOW DOSE ENTERIC [Concomitant]
     Dosage: UNK
  3. ATENOLOL. [Concomitant]
     Active Substance: ATENOLOL
  4. ALEVE [Suspect]
     Active Substance: NAPROXEN SODIUM
     Indication: ARTHRITIS
     Dosage: 1 DF, BID
     Route: 048
     Dates: start: 20140801
  5. VITAMIN D [Concomitant]
     Active Substance: CHOLECALCIFEROL

REACTIONS (3)
  - Urticaria [Not Recovered/Not Resolved]
  - Wrong technique in drug usage process [None]
  - Incorrect drug administration duration [None]

NARRATIVE: CASE EVENT DATE: 201408
